FAERS Safety Report 6695889-X (Version None)
Quarter: 2010Q2

REPORT INFORMATION
  Report Type: 
  Country: None (occurrence: None)
  Receive Date: 20100426
  Receipt Date: 20090706
  Transmission Date: 20101027
  Serious: No
  Sender: FDA-Public Use
  Company Number: A0772210A

PATIENT
  Age: 34 Year
  Sex: Female
  Weight: 54.1 kg

DRUGS (4)
  1. ZOFRAN [Suspect]
     Indication: PROPHYLAXIS OF NAUSEA AND VOMITING
     Dosage: 8MG THREE TIMES PER DAY
     Route: 048
     Dates: start: 20080101, end: 20080401
  2. ZOFRAN [Suspect]
     Route: 042
  3. LEXAPRO [Concomitant]
  4. MULTIPLE VITAMINS CHEWABLE [Concomitant]

REACTIONS (5)
  - CONSTIPATION [None]
  - DRUG EXPOSURE DURING PREGNANCY [None]
  - GASTROENTERITIS VIRAL [None]
  - LIVE BIRTH [None]
  - SOMNOLENCE [None]
